FAERS Safety Report 23285407 (Version 1)
Quarter: 2023Q4

REPORT INFORMATION
  Report Type: Spontaneous
  Country: CA (occurrence: CA)
  Receive Date: 20231211
  Receipt Date: 20231211
  Transmission Date: 20240110
  Serious: Yes (Other)
  Sender: FDA-Public Use
  Company Number: None

PATIENT
  Age: 44 Year
  Sex: Male

DRUGS (12)
  1. ALVESCO [Suspect]
     Active Substance: CICLESONIDE
     Route: 055
  2. NUCALA [Suspect]
     Active Substance: MEPOLIZUMAB
     Indication: Asthma
     Route: 042
  3. NUCALA [Suspect]
     Active Substance: MEPOLIZUMAB
     Route: 042
  4. NUCALA [Suspect]
     Active Substance: MEPOLIZUMAB
     Route: 042
  5. NUCALA [Suspect]
     Active Substance: MEPOLIZUMAB
     Route: 042
  6. OMALIZUMAB [Suspect]
     Active Substance: OMALIZUMAB
  7. ALBUTEROL [Suspect]
     Active Substance: ALBUTEROL
  8. ALBUTEROL [Suspect]
     Active Substance: ALBUTEROL
  9. ALBUTEROL [Suspect]
     Active Substance: ALBUTEROL
  10. SPIRIVA [Suspect]
     Active Substance: TIOTROPIUM BROMIDE MONOHYDRATE
  11. SYMBICORT [Suspect]
     Active Substance: BUDESONIDE\FORMOTEROL FUMARATE DIHYDRATE
  12. SYMBICORT [Suspect]
     Active Substance: BUDESONIDE\FORMOTEROL FUMARATE DIHYDRATE

REACTIONS (7)
  - Full blood count abnormal [Unknown]
  - Therapeutic product effect incomplete [Unknown]
  - Upper respiratory tract infection [Unknown]
  - Asthma [Unknown]
  - Cough [Unknown]
  - Obstructive airways disorder [Unknown]
  - Wheezing [Unknown]
